FAERS Safety Report 22387913 (Version 2)
Quarter: 2023Q2

REPORT INFORMATION
  Report Type: Spontaneous
  Country: US (occurrence: US)
  Receive Date: 20230531
  Receipt Date: 20230619
  Transmission Date: 20230721
  Serious: No
  Sender: FDA-Public Use
  Company Number: US-SA-SAC20230530000636

PATIENT
  Age: 5 Year
  Sex: Female

DRUGS (1)
  1. DUPIXENT [Suspect]
     Active Substance: DUPILUMAB
     Indication: Dermatitis atopic
     Dosage: 300 MG, OTHER
     Route: 058
     Dates: start: 202110, end: 202301

REACTIONS (1)
  - No adverse event [Unknown]

NARRATIVE: CASE EVENT DATE: 20230526
